FAERS Safety Report 6877553-7 (Version None)
Quarter: 2010Q3

REPORT INFORMATION
  Report Type: 
  Country: None (occurrence: None)
  Receive Date: 20100727
  Receipt Date: 20100223
  Transmission Date: 20110219
  Serious: No
  Sender: FDA-Public Use
  Company Number: US-ABBOTT-10P-163-0629102-00

PATIENT
  Sex: Female
  Weight: 98.064 kg

DRUGS (2)
  1. SYNTHROID [Suspect]
     Indication: HYPOTHYROIDISM
     Dates: start: 20081001
  2. ALLERGY MEDICATION [Concomitant]
     Indication: HYPERSENSITIVITY

REACTIONS (1)
  - ALOPECIA [None]
